FAERS Safety Report 18645805 (Version 1)
Quarter: 2020Q4

REPORT INFORMATION
  Report Type: Spontaneous
  Country: US (occurrence: US)
  Receive Date: 20201222
  Receipt Date: 20201222
  Transmission Date: 20210114
  Serious: No
  Sender: FDA-Public Use
  Company Number: US-ELI_LILLY_AND_COMPANY-US202012010758

PATIENT
  Sex: Female

DRUGS (1)
  1. VERZENIO [Suspect]
     Active Substance: ABEMACICLIB
     Indication: BREAST CANCER METASTATIC
     Dosage: 50 MG, UNKNOWN
     Route: 065
     Dates: start: 202002

REACTIONS (3)
  - Lacrimation increased [Unknown]
  - Diarrhoea [Recovered/Resolved]
  - Alopecia [Unknown]
